FAERS Safety Report 20950526 (Version 1)
Quarter: 2022Q2

REPORT INFORMATION
  Report Type: Spontaneous
  Country: GB (occurrence: GB)
  Receive Date: 20220613
  Receipt Date: 20220613
  Transmission Date: 20220720
  Serious: Yes (Other)
  Sender: FDA-Public Use
  Company Number: None

PATIENT
  Age: 76 Year
  Sex: Male
  Weight: 97 kg

DRUGS (2)
  1. TAMSULOSIN [Suspect]
     Active Substance: TAMSULOSIN
     Indication: Lower urinary tract symptoms
     Dosage: 400 MICROGRAM DAILY; UNIT DOSE : 400 MCG
     Route: 065
  2. MODERNA COVID-19 VACCINE [Suspect]
     Active Substance: ELASOMERAN
     Route: 065
     Dates: start: 20220531

REACTIONS (5)
  - Urine flow decreased [Recovering/Resolving]
  - Balance disorder [Recovering/Resolving]
  - Headache [Recovering/Resolving]
  - Listless [Recovering/Resolving]
  - Blood pressure increased [Recovering/Resolving]

NARRATIVE: CASE EVENT DATE: 20220602
